FAERS Safety Report 23689760 (Version 1)
Quarter: 2024Q1

REPORT INFORMATION
  Report Type: Spontaneous
  Country: US (occurrence: US)
  Receive Date: 20240331
  Receipt Date: 20240331
  Transmission Date: 20240410
  Serious: No
  Sender: FDA-Public Use
  Company Number: US-BAUSCHBL-2024BNL003785

PATIENT
  Sex: Female

DRUGS (1)
  1. LATANOPROST [Suspect]
     Active Substance: LATANOPROST
     Indication: Product used for unknown indication
     Dosage: PATIENT HAS USED IT BEFORE WITH SUCCUSSES SINCE ABOUT 2014
     Route: 047

REACTIONS (2)
  - Eye irritation [Unknown]
  - Product quality issue [Unknown]
